FAERS Safety Report 19497486 (Version 1)
Quarter: 2021Q3

REPORT INFORMATION
  Report Type: Spontaneous
  Country: US (occurrence: US)
  Receive Date: 20210706
  Receipt Date: 20210706
  Transmission Date: 20211014
  Serious: Yes (Hospitalization)
  Sender: FDA-Public Use
  Company Number: None

PATIENT
  Sex: Male

DRUGS (1)
  1. CAPECITABINE. [Suspect]
     Active Substance: CAPECITABINE
     Indication: MALIGNANT NIPPLE NEOPLASM MALE
     Dosage: ?          OTHER FREQUENCY:BID FOR 14 DAYS;?
     Route: 048
     Dates: start: 20201124

REACTIONS (3)
  - Intervertebral disc degeneration [None]
  - Therapy interrupted [None]
  - Pain [None]
